FAERS Safety Report 7151525-X (Version None)
Quarter: 2010Q4

REPORT INFORMATION
  Report Type: 
  Country: None (occurrence: None)
  Receive Date: 20101210
  Receipt Date: 20101209
  Transmission Date: 20110411
  Serious: Yes (Other)
  Sender: FDA-Public Use
  Company Number: MX-B.I. PHARMACEUTICALS,INC./RIDGEFIELD-2010-MX-00266MX

PATIENT
  Age: 85 Year
  Sex: Male

DRUGS (2)
  1. DABIGATRAN ETEXILATE [Suspect]
     Indication: THROMBOSIS PROPHYLAXIS
     Dosage: 75 MG
     Route: 048
  2. DICLOFENAC [Concomitant]

REACTIONS (2)
  - COAGULATION TIME PROLONGED [None]
  - HEPATOTOXICITY [None]
